FAERS Safety Report 21014990 (Version 1)
Quarter: 2022Q2

REPORT INFORMATION
  Report Type: Report from Study
  Country: CO (occurrence: CO)
  Receive Date: 20220628
  Receipt Date: 20220628
  Transmission Date: 20220721
  Serious: Yes (Hospitalization)
  Sender: FDA-Public Use
  Company Number: CO-ABBVIE-22K-036-4446261-00

PATIENT
  Age: 72 Year
  Sex: Female
  Weight: 75 kg

DRUGS (2)
  1. HUMIRA [Suspect]
     Active Substance: ADALIMUMAB
     Indication: Rheumatoid arthritis
     Route: 058
  2. HUMIRA [Suspect]
     Active Substance: ADALIMUMAB
     Indication: Rheumatoid arthritis
     Route: 058
     Dates: start: 20091028

REACTIONS (11)
  - Blood pressure fluctuation [Not Recovered/Not Resolved]
  - Platelet disorder [Unknown]
  - Thyroid disorder [Unknown]
  - Malaise [Not Recovered/Not Resolved]
  - Dizziness [Not Recovered/Not Resolved]
  - Urinary tract disorder [Unknown]
  - Blood test abnormal [Unknown]
  - Cough [Not Recovered/Not Resolved]
  - Hypertension [Not Recovered/Not Resolved]
  - Chest pain [Not Recovered/Not Resolved]
  - Back pain [Not Recovered/Not Resolved]

NARRATIVE: CASE EVENT DATE: 20220401
